FAERS Safety Report 17085389 (Version 2)
Quarter: 2021Q4

REPORT INFORMATION
  Report Type: Spontaneous
  Country: CA (occurrence: CA)
  Receive Date: 20191128
  Receipt Date: 20211110
  Transmission Date: 20220303
  Serious: Yes (Life-Threatening, Other)
  Sender: FDA-Public Use
  Company Number: CA-AUROBINDO-AUR-APL-2019-075095

PATIENT
  Age: 58 Year
  Sex: Female

DRUGS (1)
  1. GABAPENTIN [Suspect]
     Active Substance: GABAPENTIN
     Indication: Neuralgia
     Dosage: 200.0 MILLIGRAM, 3 TIMES A DAY
     Route: 048

REACTIONS (3)
  - Suicidal ideation [Recovered/Resolved]
  - Ataxia [Recovered/Resolved]
  - Cardiac murmur [Recovered/Resolved]
